FAERS Safety Report 21088550 (Version 1)
Quarter: 2022Q3

REPORT INFORMATION
  Report Type: Spontaneous
  Country: US (occurrence: None)
  Receive Date: 20220715
  Receipt Date: 20220715
  Transmission Date: 20221027
  Serious: Yes (Hospitalization)
  Sender: FDA-Public Use
  Company Number: None

PATIENT
  Sex: Female

DRUGS (1)
  1. PROLIA [Suspect]
     Active Substance: DENOSUMAB
     Indication: Senile osteoporosis
     Dosage: INJECT SYRINGE UNDER THE SKIN (SUBCUTANEOUS INJECTION) EVERY 6 MONTHS?
     Route: 058
     Dates: start: 20170418, end: 202207

REACTIONS (1)
  - Cerebrovascular accident [None]
